FAERS Safety Report 14558164 (Version 1)
Quarter: 2018Q1

REPORT INFORMATION
  Report Type: Report from Study
  Country: BR (occurrence: BR)
  Receive Date: 20180221
  Receipt Date: 20180221
  Transmission Date: 20180509
  Serious: Yes (Other)
  Sender: FDA-Public Use
  Company Number: PHHY2018BR023958

PATIENT
  Sex: Female
  Weight: 80 kg

DRUGS (3)
  1. METFORMIN [Suspect]
     Active Substance: METFORMIN HYDROCHLORIDE
     Indication: DIABETES MELLITUS
     Dosage: 1 DF (800 MG), BID (ONE IN THE MORNING AND ONE IN THE AFTERNOON)
     Route: 048
     Dates: start: 2010, end: 201712
  2. GALVUS [Suspect]
     Active Substance: VILDAGLIPTIN
     Indication: DIABETES MELLITUS
     Dosage: 1 DF, QD
     Route: 048
     Dates: start: 2013
  3. HCG [Concomitant]
     Active Substance: GONADOTROPHIN, CHORIONIC
     Indication: DIABETES MELLITUS
     Dosage: 5 DRP, TID (3 TIMES A DAY, FIVE DROPS IN THE MORNING, IN THE AFTERNOON AND AT NIGHT
     Route: 048

REACTIONS (4)
  - Anxiety [Recovering/Resolving]
  - Appetite disorder [Recovered/Resolved]
  - Diabetes mellitus inadequate control [Unknown]
  - Weight decreased [Unknown]
